FAERS Safety Report 5689413-8 (Version None)
Quarter: 2008Q1

REPORT INFORMATION
  Report Type: 
  Country: None (occurrence: None)
  Receive Date: 20080331
  Receipt Date: 20080317
  Transmission Date: 20080703
  Serious: Yes (Hospitalization)
  Sender: FDA-Public Use
  Company Number: US-ELI_LILLY_AND_COMPANY-US200802003161

PATIENT
  Sex: Female
  Weight: 175 kg

DRUGS (4)
  1. SOMATROPIN [Suspect]
     Indication: GROWTH HORMONE DEFICIENCY
     Dosage: 1.2 MG, DAILY (1/D)
     Dates: start: 20001124, end: 20050317
  2. COPAXONE [Concomitant]
     Indication: MULTIPLE SCLEROSIS
     Dosage: 20 MG, UNK
  3. TOPAMAX [Concomitant]
     Indication: MULTIPLE SCLEROSIS
     Dosage: 100 MG, UNK
     Route: 048
  4. BROMOCRIPTINE MESYLATE [Concomitant]
     Dosage: 2.5 MG, DAILY (1/D)
     Route: 048

REACTIONS (1)
  - NEPHRECTOMY [None]
